FAERS Safety Report 8917783 (Version 1)
Quarter: 2012Q4

REPORT INFORMATION
  Report Type: 
  Country: US (occurrence: US)
  Receive Date: 20121120
  Receipt Date: 20121120
  Transmission Date: 20130627
  Serious: Yes (Hospitalization)
  Sender: FDA-Public Use
  Company Number: US-MYLANLABS-2012S1023370

PATIENT
  Sex: Male
  Weight: 97 kg

DRUGS (3)
  1. KETAMINE [Suspect]
     Dosage: 5 mg/kg (500mg)
     Route: 030
  2. LEVOTHYROXINE SODIUM [Concomitant]
     Route: 065
  3. VALPROIC ACID [Concomitant]
     Route: 065

REACTIONS (2)
  - Laryngospasm [Recovering/Resolving]
  - Hypoxia [Recovering/Resolving]
